FAERS Safety Report 19847042 (Version 9)
Quarter: 2022Q4

REPORT INFORMATION
  Report Type: Report from Study
  Country: FR (occurrence: FR)
  Receive Date: 20210917
  Receipt Date: 20221024
  Transmission Date: 20230112
  Serious: Yes (Hospitalization, Other)
  Sender: FDA-Public Use
  Company Number: FR-JNJFOC-20210513183

PATIENT
  Age: 60 Year
  Sex: Male
  Weight: 110 kg

DRUGS (16)
  1. REVATIO [Suspect]
     Active Substance: SILDENAFIL CITRATE
     Indication: Pulmonary arterial hypertension
     Dosage: UNK
     Route: 065
  2. REVATIO [Suspect]
     Active Substance: SILDENAFIL CITRATE
     Indication: Product use in unapproved indication
  3. SELEXIPAG [Suspect]
     Active Substance: SELEXIPAG
     Indication: Pulmonary arterial hypertension
     Dosage: 200 UG
     Route: 048
     Dates: start: 20210421
  4. SELEXIPAG [Suspect]
     Active Substance: SELEXIPAG
     Dosage: 400 UG
     Route: 048
     Dates: start: 20210505
  5. SELEXIPAG [Suspect]
     Active Substance: SELEXIPAG
     Dosage: 600 UG
     Route: 048
     Dates: start: 20210519
  6. SELEXIPAG [Suspect]
     Active Substance: SELEXIPAG
     Dosage: 800 UG
     Route: 048
     Dates: start: 20210609
  7. SELEXIPAG [Suspect]
     Active Substance: SELEXIPAG
     Dosage: 1000 UG
     Route: 048
     Dates: start: 20210623
  8. SELEXIPAG [Suspect]
     Active Substance: SELEXIPAG
     Dosage: 800 UG
     Route: 048
     Dates: start: 20210702
  9. SELEXIPAG [Suspect]
     Active Substance: SELEXIPAG
     Dosage: 600 UG
     Route: 048
     Dates: start: 20210709
  10. SELEXIPAG [Suspect]
     Active Substance: SELEXIPAG
     Dosage: 800 UG
     Route: 048
     Dates: start: 20210716
  11. SELEXIPAG [Suspect]
     Active Substance: SELEXIPAG
     Dosage: 600 UG
     Route: 048
     Dates: start: 20210717
  12. SELEXIPAG [Suspect]
     Active Substance: SELEXIPAG
     Dosage: 400 UG
     Route: 048
     Dates: start: 20211020
  13. SELEXIPAG [Suspect]
     Active Substance: SELEXIPAG
     Dosage: 200 UG
     Route: 048
     Dates: start: 20220315
  14. SINTROM [Suspect]
     Active Substance: ACENOCOUMAROL
     Indication: Product used for unknown indication
     Dosage: UNK
     Route: 065
  15. BOSENTAN [Concomitant]
     Active Substance: BOSENTAN
     Indication: Pulmonary arterial hypertension
     Dosage: UNK
     Route: 065
  16. SILDENAFIL [Concomitant]
     Active Substance: SILDENAFIL
     Indication: Pulmonary arterial hypertension
     Dosage: UNK
     Route: 065

REACTIONS (20)
  - Localised infection [Recovering/Resolving]
  - Tendon rupture [Recovered/Resolved]
  - Headache [Not Recovered/Not Resolved]
  - International normalised ratio abnormal [Not Recovered/Not Resolved]
  - Fluid retention [Not Recovered/Not Resolved]
  - Nasopharyngitis [Not Recovered/Not Resolved]
  - Bronchitis [Unknown]
  - Toothache [Not Recovered/Not Resolved]
  - Fatigue [Recovered/Resolved]
  - Dyspnoea [Recovered/Resolved]
  - Pain in jaw [Not Recovered/Not Resolved]
  - Oedema peripheral [Recovered/Resolved]
  - Epistaxis [Recovered/Resolved]
  - Erection increased [Recovered/Resolved]
  - Tachycardia [Recovered/Resolved]
  - Hot flush [Not Recovered/Not Resolved]
  - Nausea [Not Recovered/Not Resolved]
  - Myalgia [Recovered/Resolved]
  - Poor quality sleep [Not Recovered/Not Resolved]
  - Wrong dose [Unknown]

NARRATIVE: CASE EVENT DATE: 20210506
